FAERS Safety Report 15963414 (Version 1)
Quarter: 2019Q1

REPORT INFORMATION
  Report Type: Spontaneous
  Country: US (occurrence: US)
  Receive Date: 20190214
  Receipt Date: 20190214
  Transmission Date: 20190417
  Serious: No
  Sender: FDA-Public Use
  Company Number: US-ALLERGAN-1835425US

PATIENT
  Age: 47 Year
  Sex: Female
  Weight: 73 kg

DRUGS (1)
  1. OZURDEX [Suspect]
     Active Substance: DEXAMETHASONE
     Indication: VISUAL IMPAIRMENT
     Dosage: 0.7 MG, SINGLE
     Route: 031
     Dates: start: 20180618, end: 20180618

REACTIONS (4)
  - Product administered at inappropriate site [Unknown]
  - Intraocular pressure increased [Unknown]
  - Off label use [Unknown]
  - Complication of device insertion [Not Recovered/Not Resolved]

NARRATIVE: CASE EVENT DATE: 20180618
